FAERS Safety Report 10646266 (Version 1)
Quarter: 2014Q4

REPORT INFORMATION
  Report Type: Spontaneous
  Country: FR (occurrence: FR)
  Receive Date: 20141211
  Receipt Date: 20141211
  Transmission Date: 20150529
  Serious: Yes (Other)
  Sender: FDA-Public Use
  Company Number: FR-GALDERMA-FR14004554

PATIENT
  Age: 50 Year
  Sex: Female

DRUGS (2)
  1. MIRVASO [Suspect]
     Active Substance: BRIMONIDINE TARTRATE
     Indication: ROSACEA
     Dosage: 0.33%
     Route: 061
     Dates: start: 201409, end: 201410
  2. TOLEXINE [Concomitant]
     Active Substance: DOXYCYCLINE
     Indication: ROSACEA

REACTIONS (6)
  - Erythema [Recovering/Resolving]
  - Pain of skin [None]
  - Application site reaction [Recovering/Resolving]
  - Dry skin [None]
  - Face oedema [Recovering/Resolving]
  - Skin burning sensation [None]

NARRATIVE: CASE EVENT DATE: 201410
